FAERS Safety Report 6938989-9 (Version None)
Quarter: 2010Q3

REPORT INFORMATION
  Report Type: 
  Country: None (occurrence: None)
  Receive Date: 20100824
  Receipt Date: 20100812
  Transmission Date: 20110219
  Serious: Yes (Other)
  Sender: FDA-Public Use
  Company Number: DE-PFIZER INC-2010102025

PATIENT
  Age: 56 Year

DRUGS (4)
  1. SUTENT [Suspect]
     Indication: RENAL CELL CARCINOMA
     Dosage: 50 MG, 1X/DAY, 4-WEEK PERIODS, 2-WEEK BREAKS BETWEEN CYCLES
     Route: 048
     Dates: start: 20080101
  2. ZOMETA [Concomitant]
     Dosage: 4 MG, ONCE A MONTH
     Dates: start: 20080101
  3. AZATHIOPRINE [Concomitant]
     Indication: COLITIS ULCERATIVE
     Dosage: 50 MG, 1X/DAY
  4. MESALAZINE [Concomitant]
     Indication: COLITIS ULCERATIVE
     Dosage: 1 G, 2X/DAY

REACTIONS (4)
  - IMPAIRED HEALING [None]
  - MUCOSAL INFLAMMATION [None]
  - OSTEONECROSIS OF JAW [None]
  - PALMAR-PLANTAR ERYTHRODYSAESTHESIA SYNDROME [None]
